FAERS Safety Report 7842547-1 (Version None)
Quarter: 2011Q4

REPORT INFORMATION
  Report Type: 
  Country: None (occurrence: None)
  Receive Date: 20111025
  Receipt Date: 20111018
  Transmission Date: 20120403
  Serious: Yes (Death, Life-Threatening, Hospitalization, Other)
  Sender: FDA-Public Use
  Company Number: DE-PFIZER INC-2011242047

PATIENT
  Age: 68 Year
  Sex: Female
  Weight: 100 kg

DRUGS (7)
  1. ETOPOSIDE [Suspect]
     Dosage: 205 UNKNOWN UNITS DAILY
     Dates: start: 20110914, end: 20110916
  2. CYTARABINE [Suspect]
     Dosage: 205 MG, DAILY
     Dates: start: 20110914, end: 20110918
  3. ATRACURIUM BESYLATE [Suspect]
     Dosage: 30 MG, DAILY
     Dates: start: 20110922, end: 20111001
  4. IDARUBICIN HCL [Suspect]
     Dosage: 24.60 UNKNOWN UNITS DAILY
     Dates: start: 20110914, end: 20110916
  5. ATRACURIUM BESYLATE [Suspect]
     Dosage: 90 MG, DAILY
     Dates: start: 20110919, end: 20110921
  6. PEGFILGRASTIM [Suspect]
     Dosage: UNK
     Dates: start: 20111002, end: 20111002
  7. GEMTUZUMAB OZOGAMICIN [Suspect]
     Dosage: 6.15 MG, DAILY
     Dates: start: 20110904, end: 20110914

REACTIONS (4)
  - HAEMODIALYSIS [None]
  - WHITE BLOOD CELL COUNT DECREASED [None]
  - RENAL FAILURE [None]
  - VENOOCCLUSIVE LIVER DISEASE [None]
